FAERS Safety Report 5307869-7 (Version None)
Quarter: 2007Q2

REPORT INFORMATION
  Report Type: 
  Country: None (occurrence: None)
  Receive Date: 20070420
  Receipt Date: 20070411
  Transmission Date: 20071010
  Serious: Yes (Other)
  Sender: FDA-Public Use
  Company Number: THYM-11363

PATIENT
  Age: 4 Year
  Sex: Male

DRUGS (2)
  1. THYMOGLOBULIN [Suspect]
     Indication: RENAL TRANSPLANT
     Dosage: 25 MG IV
     Route: 042
     Dates: start: 20070317
  2. LASIX [Concomitant]

REACTIONS (3)
  - CHROMATURIA [None]
  - DRUG HYPERSENSITIVITY [None]
  - PYREXIA [None]
